FAERS Safety Report 25997980 (Version 1)
Quarter: 2025Q4

REPORT INFORMATION
  Report Type: Spontaneous
  Country: US (occurrence: US)
  Receive Date: 20251105
  Receipt Date: 20251105
  Transmission Date: 20260118
  Serious: No
  Sender: LUPIN
  Company Number: US-LUPIN PHARMACEUTICALS INC.-2025-09835

PATIENT
  Age: 89 Year
  Weight: 33.56 kg

DRUGS (2)
  1. ALBUTEROL SULFATE [Suspect]
     Active Substance: ALBUTEROL SULFATE
     Indication: Emphysema
     Dosage: PRN (2 PUFFS EVERY 4 HOURS AS NEEDED)
  2. LEVOTHYROXINE [Concomitant]
     Active Substance: LEVOTHYROXINE
     Indication: Thyroid disorder
     Dosage: UNK
     Route: 065

REACTIONS (7)
  - Dyspnoea [Unknown]
  - Illness [Unknown]
  - Drug dose omission by device [Unknown]
  - Off label use [Unknown]
  - Wrong technique in product usage process [Unknown]
  - Circumstance or information capable of leading to device use error [Unknown]
  - Product use issue [Unknown]
